FAERS Safety Report 5533313-0 (Version None)
Quarter: 2007Q4

REPORT INFORMATION
  Report Type: 
  Country: None (occurrence: None)
  Receive Date: 20071129
  Receipt Date: 20071129
  Transmission Date: 20080405
  Serious: Yes (Hospitalization)
  Sender: FDA-Public Use
  Company Number: None

PATIENT
  Sex: Male
  Weight: 70.45 kg

DRUGS (3)
  1. CARBOPLATIN [Suspect]
     Dosage: 540 MG
     Dates: start: 20071115
  2. ERBITUX [Suspect]
     Dosage: 788 MG
  3. ALIMTA [Suspect]
     Dosage: 985 MG

REACTIONS (9)
  - BLOOD CULTURE POSITIVE [None]
  - CHEST PAIN [None]
  - DRUG ABUSE [None]
  - NEUTROPHIL COUNT DECREASED [None]
  - NUTRITIONAL CONDITION ABNORMAL [None]
  - ODYNOPHAGIA [None]
  - PYREXIA [None]
  - RADIATION OESOPHAGITIS [None]
  - STAPHYLOCOCCAL INFECTION [None]
